FAERS Safety Report 15373838 (Version 2)
Quarter: 2018Q4

REPORT INFORMATION
  Report Type: Spontaneous
  Country: US (occurrence: US)
  Receive Date: 20180912
  Receipt Date: 20181213
  Transmission Date: 20190204
  Serious: Yes (Other)
  Sender: FDA-Public Use
  Company Number: US-009507513-1809USA003687

PATIENT
  Age: 77 Year
  Sex: Male
  Weight: 58.97 kg

DRUGS (2)
  1. KEYTRUDA [Suspect]
     Active Substance: PEMBROLIZUMAB
     Indication: HEAD AND NECK CANCER
     Dosage: 200 MG,EVERY 3 WEEKS/ FIRST AND SECOND DOSE
     Route: 042
  2. KEYTRUDA [Suspect]
     Active Substance: PEMBROLIZUMAB
     Dosage: REDUCED THE DOSE/WEIGHT BASED/ THIRD DOSE
     Route: 042
     Dates: start: 20180906

REACTIONS (5)
  - Oral submucosal fibrosis [Unknown]
  - Gynaecomastia [Unknown]
  - Fatigue [Unknown]
  - Mouth swelling [Unknown]
  - Breast fibrosis [Unknown]
